FAERS Safety Report 6863867-3 (Version None)
Quarter: 2010Q3

REPORT INFORMATION
  Report Type: 
  Country: None (occurrence: None)
  Receive Date: 20100721
  Receipt Date: 20080306
  Transmission Date: 20110219
  Serious: No
  Sender: FDA-Public Use
  Company Number: US-PFIZER INC-2008023142

PATIENT
  Sex: Female
  Weight: 68.181 kg

DRUGS (4)
  1. CHANTIX [Suspect]
     Indication: SMOKING CESSATION THERAPY
     Dates: start: 20080102
  2. AVELOX [Interacting]
     Indication: SINUSITIS
     Dates: start: 20080303
  3. ANTIHYPERTENSIVES [Concomitant]
     Indication: HYPERTENSION
  4. PAXIL [Concomitant]

REACTIONS (18)
  - ABNORMAL DREAMS [None]
  - ANXIETY [None]
  - CONSTIPATION [None]
  - DISTURBANCE IN ATTENTION [None]
  - DRUG INTERACTION [None]
  - DRY EYE [None]
  - DRY MOUTH [None]
  - FEELING ABNORMAL [None]
  - FLATULENCE [None]
  - HEADACHE [None]
  - IMPULSIVE BEHAVIOUR [None]
  - INSOMNIA [None]
  - IRRITABILITY [None]
  - NAUSEA [None]
  - NERVOUSNESS [None]
  - SINUSITIS [None]
  - SLEEP DISORDER [None]
  - TREMOR [None]
